FAERS Safety Report 6354659-2 (Version None)
Quarter: 2009Q3

REPORT INFORMATION
  Report Type: 
  Country: None (occurrence: None)
  Receive Date: 20090909
  Receipt Date: 20090828
  Transmission Date: 20100115
  Serious: Yes (Hospitalization)
  Sender: FDA-Public Use
  Company Number: 2009SP020307

PATIENT
  Age: 51 Year
  Sex: Male
  Weight: 93.8946 kg

DRUGS (3)
  1. PEG-INTRON [Suspect]
     Indication: HEPATITIS C
     Dosage: 150 MCG; QW; SC
     Route: 058
     Dates: start: 20081211, end: 20090813
  2. PLACEBO [Suspect]
     Indication: HEPATITIS C
     Dosage: 1200 MG; QD; PO
     Route: 048
     Dates: start: 20081211, end: 20090806
  3. RIBAVIRIN [Suspect]
     Indication: HEPATITIS C
     Dosage: 1200 MG; QD; PO
     Route: 048
     Dates: start: 20081211, end: 20090813

REACTIONS (8)
  - ANXIETY [None]
  - ASTHENIA [None]
  - DYSPNOEA [None]
  - HYPERTENSION [None]
  - HYPOTHYROIDISM [None]
  - NEPHROTIC SYNDROME [None]
  - OEDEMA [None]
  - RENAL FAILURE ACUTE [None]
